FAERS Safety Report 9075662 (Version 1)
Quarter: 2013Q1

REPORT INFORMATION
  Report Type: Report from Study
  Country: US (occurrence: US)
  Receive Date: 20130129
  Receipt Date: 20130129
  Transmission Date: 20140127
  Serious: No
  Sender: FDA-Public Use
  Company Number: US-ABBOTT-12P-163-0938012-00

PATIENT
  Age: 60 Year
  Sex: Female

DRUGS (4)
  1. HUMIRA 40 MG/0.8 ML PEN [Suspect]
     Indication: CROHN^S DISEASE
     Dates: start: 20120312
  2. POTASSIUM [Concomitant]
     Indication: BOWEL MOVEMENT IRREGULARITY
  3. BABY ASPIRIN [Concomitant]
     Indication: THROMBOSIS
     Dosage: 81MG DAILY
  4. AMITRIPTYLINE [Concomitant]
     Indication: INSOMNIA
     Dosage: 150MG DAILY

REACTIONS (3)
  - Rash pruritic [Not Recovered/Not Resolved]
  - Rash erythematous [Not Recovered/Not Resolved]
  - Rash [Not Recovered/Not Resolved]
